FAERS Safety Report 25304928 (Version 2)
Quarter: 2025Q2

REPORT INFORMATION
  Report Type: Spontaneous
  Country: DE (occurrence: DE)
  Receive Date: 20250513
  Receipt Date: 20250611
  Transmission Date: 20250716
  Serious: Yes (Other)
  Sender: ALEXION PHARMACEUTICALS
  Company Number: DE-AstraZeneca-CH-00865421A

PATIENT
  Age: 39 Year
  Weight: 77 kg

DRUGS (1)
  1. LYNPARZA [Suspect]
     Active Substance: OLAPARIB
     Indication: Breast cancer

REACTIONS (2)
  - Idiopathic intracranial hypertension [Recovered/Resolved]
  - Off label use [Unknown]
